FAERS Safety Report 5655282-5 (Version None)
Quarter: 2008Q1

REPORT INFORMATION
  Report Type: 
  Country: None (occurrence: None)
  Receive Date: 20080307
  Receipt Date: 20080225
  Transmission Date: 20080703
  Serious: Yes (Hospitalization)
  Sender: FDA-Public Use
  Company Number: B0511106A

PATIENT
  Age: 81 Year
  Sex: Female

DRUGS (26)
  1. AUGMENTIN '125' [Suspect]
     Indication: DRUG USE FOR UNKNOWN INDICATION
     Route: 048
     Dates: start: 20070225, end: 20070302
  2. PREVISCAN [Suspect]
     Route: 048
     Dates: start: 20070208, end: 20070313
  3. ATACAND [Suspect]
     Route: 048
     Dates: start: 20070218, end: 20070313
  4. DI ANTALVIC [Suspect]
     Route: 048
     Dates: start: 20070307, end: 20070309
  5. MYCOSTATIN [Suspect]
     Route: 048
     Dates: start: 20070306, end: 20070321
  6. SOLUPRED [Concomitant]
     Route: 048
     Dates: start: 20070225, end: 20070227
  7. CELESTONE [Concomitant]
     Dosage: 4INJ PER DAY
     Route: 065
     Dates: end: 20070223
  8. CORDARONE [Concomitant]
     Route: 065
     Dates: start: 20070208, end: 20070214
  9. LASILIX [Concomitant]
     Route: 065
     Dates: start: 20070208
  10. ALDACTONE [Concomitant]
     Route: 065
     Dates: end: 20070215
  11. NEXIUM [Concomitant]
     Route: 065
     Dates: start: 20070208
  12. VASTEN 20 [Concomitant]
     Route: 065
     Dates: start: 20070208, end: 20070212
  13. HEMIGOXINE [Concomitant]
     Route: 065
     Dates: start: 20070208, end: 20070226
  14. CARDENSIEL [Concomitant]
     Route: 065
     Dates: start: 20070208, end: 20070212
  15. PULMICORT [Concomitant]
     Route: 065
     Dates: start: 20070212, end: 20070223
  16. SILOMAT [Concomitant]
     Route: 065
     Dates: start: 20070215, end: 20070223
  17. DAFALGAN [Concomitant]
     Route: 065
     Dates: start: 20070214, end: 20070222
  18. TRINIPATCH [Concomitant]
     Route: 065
     Dates: start: 20070214, end: 20070225
  19. TOPLEXIL [Concomitant]
     Route: 065
     Dates: start: 20070219, end: 20070319
  20. VEINAMITOL [Concomitant]
     Route: 065
     Dates: start: 20070223, end: 20070302
  21. INSPRA [Concomitant]
     Route: 065
     Dates: start: 20070226, end: 20070301
  22. PEVARYL [Concomitant]
     Route: 065
     Dates: start: 20070306
  23. AERIUS [Concomitant]
     Route: 065
     Dates: start: 20070307
  24. BIOCIDAN [Concomitant]
     Route: 065
     Dates: start: 20070309, end: 20070310
  25. GELOX [Concomitant]
     Route: 065
     Dates: start: 20070314, end: 20070321
  26. POTASSIUM CHLORIDE [Concomitant]
     Route: 065
     Dates: start: 20070318

REACTIONS (11)
  - BLISTER [None]
  - EOSINOPHIL COUNT INCREASED [None]
  - ERYTHEMA [None]
  - HAEMOGLOBIN DECREASED [None]
  - HYPERSENSITIVITY [None]
  - LIP HAEMORRHAGE [None]
  - OEDEMA PERIPHERAL [None]
  - PRURITUS [None]
  - SKIN LESION [None]
  - THROMBOCYTOPENIA [None]
  - VENOUS STASIS [None]
